FAERS Safety Report 20227756 (Version 1)
Quarter: 2021Q4

REPORT INFORMATION
  Report Type: Spontaneous
  Country: CA (occurrence: CA)
  Receive Date: 20211224
  Receipt Date: 20211224
  Transmission Date: 20220303
  Serious: Yes (Hospitalization)
  Sender: FDA-Public Use
  Company Number: CA-BAUSCH-BL-2021-042032

PATIENT
  Sex: Female
  Weight: 6 kg

DRUGS (2)
  1. BUPROPION [Suspect]
     Active Substance: BUPROPION
     Indication: Depression
     Route: 065
  2. ESCITALOPRAM [Suspect]
     Active Substance: ESCITALOPRAM OXALATE
     Indication: Depression
     Route: 063

REACTIONS (6)
  - Sleep disorder [Unknown]
  - Tonic convulsion [Unknown]
  - Vomiting [Unknown]
  - Drug level increased [Unknown]
  - Exposure via breast milk [Unknown]
  - Drug interaction [Unknown]
